FAERS Safety Report 9004640 (Version 2)
Quarter: 2012Q4

REPORT INFORMATION
  Report Type: Spontaneous
  Country: GB (occurrence: None)
  Receive Date: 20121227
  Receipt Date: 20121227
  Transmission Date: 20130627
  Serious: Yes (Death)
  Sender: FDA-Public Use
  Company Number: AUR-APL-2012-05486

PATIENT
  Age: 74 Year
  Sex: Male

DRUGS (8)
  1. METFORMIN (METFORMIN) [Suspect]
     Indication: HYPERGLYCEMIA
     Dosage: 2 gm (1 gm, 2 in 1 D),Unknown
     Dates: end: 20111009
  2. FRUSEMIDE (FUROSEMIDE) [Suspect]
     Indication: FLUID RETENTION
     Dosage: 40 mg (40 mg, 1 in 1 D), Unknown
  3. ASPIRIN (ACETYLSALICYLIC ACID) [Concomitant]
  4. BISOPROLOL(BISOPROLOL) [Concomitant]
  5. DIGOXIN(DIGOXIN) [Concomitant]
  6. LANSOPRAZOL(LANSOPRAZOLE) [Concomitant]
  7. SIMVASTATIN(SIMVASTATIN) [Concomitant]
  8. TRAMADOL [Concomitant]

REACTIONS (4)
  - Lactic acidosis [None]
  - Blood glucose decreased [None]
  - Hypophagia [None]
  - Glomerular filtration rate decreased [None]
